FAERS Safety Report 20048843 (Version 1)
Quarter: 2021Q4

REPORT INFORMATION
  Report Type: Spontaneous
  Country: US (occurrence: US)
  Receive Date: 20211109
  Receipt Date: 20211109
  Transmission Date: 20220303
  Serious: No
  Sender: FDA-Public Use
  Company Number: US-Accord-222381

PATIENT
  Sex: Male
  Weight: 92.53 kg

DRUGS (2)
  1. HYDROCHLOROTHIAZIDE [Suspect]
     Active Substance: HYDROCHLOROTHIAZIDE
     Indication: Blood pressure measurement
     Dosage: ONCE DAY MORNING, 18 MONTHS AGO
     Dates: start: 2021
  2. LOSARTAN [Concomitant]
     Active Substance: LOSARTAN
     Dosage: 50MG , ONCE A DAY
     Route: 048

REACTIONS (2)
  - Dysuria [Recovered/Resolved]
  - Blood pressure increased [Recovered/Resolved]
